FAERS Safety Report 6223339-6 (Version None)
Quarter: 2009Q2

REPORT INFORMATION
  Report Type: 
  Country: None (occurrence: None)
  Receive Date: 20090611
  Receipt Date: 20090604
  Transmission Date: 20091009
  Serious: Yes (Other)
  Sender: FDA-Public Use
  Company Number: US-AMGEN-KDL350320

PATIENT
  Sex: Male
  Weight: 21.8 kg

DRUGS (12)
  1. PROCRIT [Suspect]
     Indication: DIALYSIS
     Route: 058
  2. BACTRIM [Concomitant]
  3. VALACYCLOVIR HYDROCHLORIDE [Concomitant]
  4. MULTI-VITAMINS [Concomitant]
  5. AMLODIPINE [Concomitant]
  6. SODIUM FLUORIDE [Concomitant]
  7. CALCIUM CARBONATE [Concomitant]
     Dates: start: 20090401
  8. CALCITRIOL [Concomitant]
  9. UNSPECIFIED VITAMINS [Concomitant]
  10. PROGRAF [Concomitant]
  11. IMURAN [Concomitant]
  12. PREDNISONE [Concomitant]

REACTIONS (5)
  - BK VIRUS INFECTION [None]
  - CONVULSION [None]
  - EPSTEIN-BARR VIRUS INFECTION [None]
  - INJECTION SITE PAIN [None]
  - KIDNEY TRANSPLANT REJECTION [None]
